FAERS Safety Report 7306611-8 (Version None)
Quarter: 2011Q1

REPORT INFORMATION
  Report Type: 
  Country: None (occurrence: None)
  Receive Date: 20110222
  Receipt Date: 20110214
  Transmission Date: 20110831
  Serious: Yes (Other)
  Sender: FDA-Public Use
  Company Number: DE-ROXANE LABORATORIES, INC.-2011-RO-00172RO

PATIENT
  Age: 43 Year
  Sex: Male

DRUGS (6)
  1. ARTIFICIAL TEARS [Suspect]
     Indication: DRY EYE
  2. ACYCLOVIR [Suspect]
     Indication: ANTIVIRAL TREATMENT
     Dosage: 2000 MG
     Route: 048
  3. ACYCLOVIR [Suspect]
     Dosage: 2000 MG
     Route: 048
     Dates: start: 20070801
  4. DEXAMETHASONE [Suspect]
     Route: 061
  5. PREDNISOLONE [Suspect]
     Indication: IMMUNOMODULATORY THERAPY
  6. MYCOPHENOLATE MOFETIL [Suspect]
     Indication: IMMUNOMODULATORY THERAPY
     Dosage: 2 G

REACTIONS (10)
  - KERATOCONJUNCTIVITIS SICCA [None]
  - TRANSPLANT REJECTION [None]
  - CONJUNCTIVITIS [None]
  - IMPAIRED HEALING [None]
  - BLEPHARITIS [None]
  - ULCERATIVE KERATITIS [None]
  - KERATITIS HERPETIC [None]
  - CORNEAL PERFORATION [None]
  - GRAFT COMPLICATION [None]
  - CORNEAL DEPOSITS [None]
